FAERS Safety Report 6709259-9 (Version None)
Quarter: 2010Q2

REPORT INFORMATION
  Report Type: 
  Country: None (occurrence: None)
  Receive Date: 20100429
  Receipt Date: 20100415
  Transmission Date: 20101027
  Serious: Yes (Hospitalization)
  Sender: FDA-Public Use
  Company Number: 009220

PATIENT
  Sex: Female
  Weight: 53 kg

DRUGS (12)
  1. CERTOLIZUMAB PEGOL (CERTOLIZUMAB PEGOL) [Suspect]
     Indication: RHEUMATOID ARTHRITIS
     Dosage: (200 MG 1X/2 WEEKS SUBCUTANEOUS), (100 MG 1X/2 WEEKS SUBCUTANEOUS)
     Route: 058
     Dates: start: 20100107, end: 20100203
  2. CERTOLIZUMAB PEGOL (CERTOLIZUMAB PEGOL) [Suspect]
     Indication: RHEUMATOID ARTHRITIS
     Dosage: (200 MG 1X/2 WEEKS SUBCUTANEOUS), (100 MG 1X/2 WEEKS SUBCUTANEOUS)
     Route: 058
     Dates: start: 20100218
  3. METHOTREXATE [Concomitant]
  4. FOLIC ACID [Concomitant]
  5. DEFLAZACORT [Concomitant]
  6. MELOXICAM [Concomitant]
  7. PIROXICAM [Concomitant]
  8. FERROUS SULFATE TAB [Concomitant]
  9. CHOLESTYRAMINE [Concomitant]
  10. BACTROBAN [Concomitant]
  11. CAL-D-VITA /00944201/ [Concomitant]
  12. REBAMIPIDE [Concomitant]

REACTIONS (7)
  - ABDOMINAL PAIN LOWER [None]
  - BLOOD ALBUMIN DECREASED [None]
  - DIABETES MELLITUS [None]
  - ILEUS [None]
  - NAUSEA [None]
  - TUBO-OVARIAN ABSCESS [None]
  - VOMITING [None]
